FAERS Safety Report 5834650-2 (Version None)
Quarter: 2008Q3

REPORT INFORMATION
  Report Type: 
  Country: None (occurrence: None)
  Receive Date: 20080801
  Receipt Date: 20080716
  Transmission Date: 20090109
  Serious: Yes (Life-Threatening)
  Sender: FDA-Public Use
  Company Number: 2008AL008365

PATIENT
  Age: 65 Year
  Sex: Male
  Weight: 99.7913 kg

DRUGS (7)
  1. DIGOXIN [Suspect]
     Indication: ARTERIOSCLEROSIS
     Dosage: 0.25 MG, DAILY, PO  YEARS - PRESENT
     Route: 048
  2. PLAVIX [Concomitant]
  3. CRESTOR [Concomitant]
  4. SYNTHROID [Concomitant]
  5. HYDROCHLOROTHIAZIDE [Concomitant]
  6. TOPROL-XL [Concomitant]
  7. ZETIA [Concomitant]

REACTIONS (3)
  - MEDICATION ERROR [None]
  - MYOCARDIAL INFARCTION [None]
  - PHARMACEUTICAL PRODUCT COMPLAINT [None]
